FAERS Safety Report 17743548 (Version 1)
Quarter: 2020Q2

REPORT INFORMATION
  Report Type: Spontaneous
  Country: CA (occurrence: CA)
  Receive Date: 20200505
  Receipt Date: 20200505
  Transmission Date: 20200714
  Serious: Yes (Other)
  Sender: FDA-Public Use
  Company Number: CA-ROCHE-2591752

PATIENT
  Sex: Female

DRUGS (17)
  1. HUMIRA [Concomitant]
     Active Substance: ADALIMUMAB
     Dosage: SOLUTION
     Route: 058
  2. XELJANZ [Concomitant]
     Active Substance: TOFACITINIB CITRATE
     Route: 065
  3. ACTEMRA [Suspect]
     Active Substance: TOCILIZUMAB
     Indication: PRODUCT USED FOR UNKNOWN INDICATION
     Route: 065
  4. LEFLUNOMIDE. [Concomitant]
     Active Substance: LEFLUNOMIDE
     Route: 065
  5. METHOTREXATE. [Concomitant]
     Active Substance: METHOTREXATE
     Route: 058
  6. PREDNISONE. [Concomitant]
     Active Substance: PREDNISONE
     Indication: RHEUMATOID ARTHRITIS
     Route: 065
  7. LEFLUNOMIDE. [Concomitant]
     Active Substance: LEFLUNOMIDE
     Route: 065
  8. SIMPONI [Concomitant]
     Active Substance: GOLIMUMAB
     Dosage: SOLUTION
     Route: 058
  9. ORENCIA [Suspect]
     Active Substance: ABATACEPT
     Indication: RHEUMATOID ARTHRITIS
     Route: 065
  10. TRAMADOL. [Suspect]
     Active Substance: TRAMADOL
     Indication: PRODUCT USED FOR UNKNOWN INDICATION
     Route: 065
  11. METHOTREXATE. [Concomitant]
     Active Substance: METHOTREXATE
     Indication: RHEUMATOID ARTHRITIS
     Route: 048
  12. METHOTREXATE. [Concomitant]
     Active Substance: METHOTREXATE
     Route: 058
  13. PLAQUENIL [Concomitant]
     Active Substance: HYDROXYCHLOROQUINE SULFATE
     Route: 065
  14. XELJANZ [Concomitant]
     Active Substance: TOFACITINIB CITRATE
     Indication: RHEUMATOID ARTHRITIS
     Route: 048
  15. ENBREL [Suspect]
     Active Substance: ETANERCEPT
     Indication: RHEUMATOID ARTHRITIS
     Route: 065
  16. PREDNISONE. [Concomitant]
     Active Substance: PREDNISONE
     Route: 065
  17. ARAVA [Concomitant]
     Active Substance: LEFLUNOMIDE
     Route: 065

REACTIONS (10)
  - Drug ineffective [Unknown]
  - Mobility decreased [Unknown]
  - C-reactive protein increased [Unknown]
  - Contraindicated product administered [Unknown]
  - Drug hypersensitivity [Unknown]
  - Joint swelling [Unknown]
  - Rheumatoid arthritis [Unknown]
  - Arthralgia [Unknown]
  - Gait inability [Unknown]
  - Treatment failure [Unknown]
